FAERS Safety Report 7412528-0 (Version None)
Quarter: 2011Q2

REPORT INFORMATION
  Report Type: 
  Country: None (occurrence: None)
  Receive Date: 20110408
  Receipt Date: 20110408
  Transmission Date: 20111010
  Serious: Yes (Death)
  Sender: FDA-Public Use
  Company Number: None

PATIENT
  Age: 76 Year
  Sex: Female

DRUGS (6)
  1. REVLIMID [Suspect]
     Indication: ACUTE MYELOID LEUKAEMIA
     Dosage: 10MG DAILY ORALLY
     Route: 048
     Dates: start: 20110101, end: 20110301
  2. PROCHLORPERAZINE TAB [Concomitant]
  3. HYDROCODONE BITARTRATE AND ACETAMINOPHEN [Concomitant]
  4. LORAZEPAM [Concomitant]
  5. DRONABINOL [Concomitant]
  6. OMEPRAZOLE [Concomitant]

REACTIONS (8)
  - PANCYTOPENIA [None]
  - EPISTAXIS [None]
  - PAIN IN EXTREMITY [None]
  - INFUSION SITE CELLULITIS [None]
  - SEPSIS [None]
  - DECREASED APPETITE [None]
  - HYPOPHAGIA [None]
  - PNEUMONIA [None]
